FAERS Safety Report 8285187 (Version 3)
Quarter: 2012Q4

REPORT INFORMATION
  Report Type: Report from Study
  Country: FR (occurrence: FR)
  Receive Date: 20111213
  Receipt Date: 20121101
  Transmission Date: 20130627
  Serious: Yes (Hospitalization)
  Sender: FDA-Public Use
  Company Number: FR-BIOGENIDEC-2011BI046187

PATIENT
  Age: 47 Year
  Sex: Female

DRUGS (6)
  1. TYSABRI [Suspect]
     Indication: MULTIPLE SCLEROSIS
     Route: 042
     Dates: start: 20080221
  2. PROZAC [Concomitant]
  3. LIORESAL [Concomitant]
  4. LAROXYL [Concomitant]
  5. RIVOTRIL [Concomitant]
  6. SPAGULAX [Concomitant]

REACTIONS (1)
  - Hypertonic bladder [Recovered/Resolved]
